FAERS Safety Report 7842140-0 (Version None)
Quarter: 2011Q4

REPORT INFORMATION
  Report Type: 
  Country: None (occurrence: None)
  Receive Date: 20111025
  Receipt Date: 20111019
  Transmission Date: 20120403
  Serious: Yes (Other)
  Sender: FDA-Public Use
  Company Number: US-AMGEN-USASP2011054269

PATIENT
  Sex: Male

DRUGS (8)
  1. MULTIVITAMIN                       /00097801/ [Concomitant]
  2. ASPIRIN [Concomitant]
     Dosage: 325 MG, QD
  3. SIMVASTATIN [Concomitant]
     Dosage: 40 MG, QD
  4. BETAXOLOL [Concomitant]
     Dosage: 5 MG, QD
  5. HYDROXYZINE [Concomitant]
     Dosage: 25 MG, PRN
  6. LISINOPRIL [Concomitant]
     Dosage: 10 MG, QD
  7. RITUXIMAB [Concomitant]
     Indication: IDIOPATHIC THROMBOCYTOPENIC PURPURA
  8. NPLATE [Suspect]
     Indication: IDIOPATHIC THROMBOCYTOPENIC PURPURA
     Dates: start: 20101001, end: 20101111

REACTIONS (4)
  - PLATELET COUNT INCREASED [None]
  - DIVERTICULITIS [None]
  - CHOLECYSTITIS [None]
  - CONTUSION [None]
